FAERS Safety Report 16762138 (Version 1)
Quarter: 2019Q3

REPORT INFORMATION
  Report Type: Spontaneous
  Country: NZ (occurrence: NZ)
  Receive Date: 20190830
  Receipt Date: 20190830
  Transmission Date: 20191005
  Serious: Yes (Other)
  Sender: FDA-Public Use
  Company Number: PHHY2019NZ200990

PATIENT
  Age: 56 Year
  Sex: Female

DRUGS (2)
  1. PAZOPANIB [Suspect]
     Active Substance: PAZOPANIB
     Indication: CLEAR CELL RENAL CELL CARCINOMA
     Dosage: 200 MG, QD
     Route: 065
     Dates: start: 201502
  2. PAZOPANIB [Suspect]
     Active Substance: PAZOPANIB
     Dosage: 400 MG, QD
     Route: 065

REACTIONS (4)
  - Systemic toxicity [Unknown]
  - Pancreatic failure [Unknown]
  - Blood thyroid stimulating hormone abnormal [Unknown]
  - Diarrhoea [Unknown]
